FAERS Safety Report 10302035 (Version 4)
Quarter: 2015Q2

REPORT INFORMATION
  Report Type: Spontaneous
  Country: US (occurrence: US)
  Receive Date: 20140714
  Receipt Date: 20150505
  Transmission Date: 20150821
  Serious: Yes (Hospitalization, Disabling, Other)
  Sender: FDA-Public Use
  Company Number: US-MERCK-1407USA001962

PATIENT
  Sex: Female

DRUGS (6)
  1. FOSAMAX [Suspect]
     Active Substance: ALENDRONATE SODIUM
     Indication: OSTEOPOROSIS
     Dosage: 70 MG, UNK
     Dates: start: 20050502, end: 200701
  2. FOSAMAX PLUS D [Suspect]
     Active Substance: ALENDRONATE SODIUM\CHOLECALCIFEROL
     Indication: OSTEOPOROSIS
     Dosage: 70 MG/ 2800 IU, QW
     Route: 048
     Dates: start: 20070402, end: 200811
  3. CHOLECALCIFEROL [Concomitant]
     Active Substance: CHOLECALCIFEROL
     Dosage: 1000 IU, QD
     Dates: start: 2001, end: 2010
  4. VITAMINS (UNSPECIFIED) [Concomitant]
     Active Substance: VITAMINS
     Dosage: UNK, QD
     Dates: start: 2001, end: 2010
  5. ALENDRONATE SODIUM. [Suspect]
     Active Substance: ALENDRONATE SODIUM
     Indication: OSTEOPOROSIS
     Dosage: 70 MG, UNK
     Route: 048
     Dates: start: 20090313, end: 20100126
  6. CALCIUM (UNSPECIFIED) [Concomitant]
     Active Substance: CALCIUM
     Dosage: UNK, QD
     Dates: start: 2001, end: 2010

REACTIONS (29)
  - Pain [Not Recovered/Not Resolved]
  - Addison^s disease [Not Recovered/Not Resolved]
  - Major depression [Unknown]
  - Intramedullary rod insertion [Unknown]
  - Internal fixation of fracture [Unknown]
  - Knee arthroplasty [Unknown]
  - Internal fixation of fracture [Unknown]
  - Hip arthroplasty [Unknown]
  - Post herpetic neuralgia [Unknown]
  - Panic disorder [Unknown]
  - Impaired fasting glucose [Unknown]
  - Femur fracture [Not Recovered/Not Resolved]
  - Device failure [Unknown]
  - Overdose [Unknown]
  - Fatigue [Not Recovered/Not Resolved]
  - Aphthous stomatitis [Unknown]
  - Dysthymic disorder [Unknown]
  - Hypopituitarism [Unknown]
  - Antiphospholipid syndrome [Unknown]
  - Device failure [Unknown]
  - Foot deformity [Unknown]
  - Tonsillectomy [Unknown]
  - Muscle spasms [Unknown]
  - Bone graft [Unknown]
  - Knee arthroplasty [Unknown]
  - Infection [Unknown]
  - Chronic inflammatory demyelinating polyradiculoneuropathy [Not Recovered/Not Resolved]
  - Autoimmune disorder [Unknown]
  - Irritable bowel syndrome [Unknown]

NARRATIVE: CASE EVENT DATE: 20050715
